FAERS Safety Report 9383926 (Version 2)
Quarter: 2013Q4

REPORT INFORMATION
  Report Type: Spontaneous
  Country: TW (occurrence: TW)
  Receive Date: 20130705
  Receipt Date: 20131215
  Transmission Date: 20140711
  Serious: Yes (Other)
  Sender: FDA-Public Use
  Company Number: TW-AMGEN-TWNSP2013046993

PATIENT
  Age: 37 Year
  Sex: Female
  Weight: 52 kg

DRUGS (6)
  1. ARANESP [Suspect]
     Indication: NEPHROGENIC ANAEMIA
     Dosage: 20 MUG, 1X/WEEK
     Route: 058
     Dates: start: 20121101, end: 20130611
  2. FOLIC ACID [Concomitant]
     Dosage: UNK UNK, QD
  3. B.C                                /00083501/ [Concomitant]
     Dosage: UNK, QD
     Route: 065
  4. NORVASC [Concomitant]
     Dosage: 5 MG, QD
     Route: 048
     Dates: start: 20121101
  5. DIOVAN [Concomitant]
     Dosage: UNK, QD
     Route: 048
     Dates: start: 20121101, end: 20130503
  6. DILATREND [Concomitant]
     Dosage: UNK, BID
     Route: 048
     Dates: start: 20130103, end: 20130503

REACTIONS (1)
  - Menorrhagia [Recovered/Resolved]
